FAERS Safety Report 5502839-8 (Version None)
Quarter: 2007Q4

REPORT INFORMATION
  Report Type: 
  Country: None (occurrence: None)
  Receive Date: 20071029
  Receipt Date: 20071016
  Transmission Date: 20080405
  Serious: Yes (Other)
  Sender: FDA-Public Use
  Company Number: 2007333261

PATIENT
  Age: 14 Year
  Sex: Female
  Weight: 58.9676 kg

DRUGS (2)
  1. SUDAFED S.A. [Suspect]
     Indication: NASAL CONGESTION
     Dosage: 1 FILL DAILY (1 IN 1 D), ORAL
     Route: 048
     Dates: start: 20071001, end: 20071015
  2. CAFFEINE CITRATE [Suspect]
     Dosage: UNSPECIFIED
     Dates: start: 20071014

REACTIONS (2)
  - ABNORMAL BEHAVIOUR [None]
  - HALLUCINATIONS, MIXED [None]
